FAERS Safety Report 6096636-5 (Version None)
Quarter: 2009Q1

REPORT INFORMATION
  Report Type: 
  Country: None (occurrence: None)
  Receive Date: 20090227
  Receipt Date: 20090219
  Transmission Date: 20090719
  Serious: Yes (Hospitalization, Other)
  Sender: FDA-Public Use
  Company Number: ES-ABBOTT-09P-144-0558542-00

PATIENT
  Age: 49 Year
  Sex: Male

DRUGS (5)
  1. KALETRA [Suspect]
     Indication: HIV INFECTION
     Dates: start: 20031128, end: 20040724
  2. EFAVIRENZ [Suspect]
     Indication: HIV INFECTION
     Dates: start: 20031128, end: 20040724
  3. ZERIT [Suspect]
     Indication: HIV INFECTION
  4. DIDANOSINE [Suspect]
     Indication: HIV INFECTION
  5. LAMIVUDINE [Suspect]
     Indication: HIV INFECTION
     Dates: start: 20031128, end: 20040724

REACTIONS (2)
  - DRUG TOXICITY [None]
  - OSTEONECROSIS [None]
